FAERS Safety Report 25149814 (Version 1)
Quarter: 2025Q2

REPORT INFORMATION
  Report Type: Spontaneous
  Country: US (occurrence: US)
  Receive Date: 20250402
  Receipt Date: 20250402
  Transmission Date: 20250717
  Serious: No
  Sender: AMGEN
  Company Number: US-AMGEN-USASP2025061555

PATIENT
  Sex: Female

DRUGS (1)
  1. REPATHA [Suspect]
     Active Substance: EVOLOCUMAB
     Indication: Product used for unknown indication
     Route: 065
     Dates: start: 20250209

REACTIONS (22)
  - Joint injury [Unknown]
  - Vision blurred [Unknown]
  - Chills [Unknown]
  - Dyspnoea [Unknown]
  - Swelling face [Unknown]
  - Pyrexia [Unknown]
  - Peripheral swelling [Not Recovered/Not Resolved]
  - Weight increased [Unknown]
  - Joint dislocation [Not Recovered/Not Resolved]
  - Pain in extremity [Unknown]
  - Decreased appetite [Unknown]
  - Myalgia [Unknown]
  - Nausea [Unknown]
  - Dysuria [Unknown]
  - Arthralgia [Unknown]
  - Erythema [Unknown]
  - Eye swelling [Unknown]
  - Joint swelling [Unknown]
  - Eye pain [Unknown]
  - Gait inability [Unknown]
  - Back pain [Unknown]
  - Dysphagia [Unknown]

NARRATIVE: CASE EVENT DATE: 20250201
